FAERS Safety Report 11766740 (Version 1)
Quarter: 2015Q4

REPORT INFORMATION
  Report Type: Spontaneous
  Country: US (occurrence: None)
  Receive Date: 20151120
  Receipt Date: 20151120
  Transmission Date: 20160304
  Serious: Yes (Hospitalization)
  Sender: FDA-Public Use
  Company Number: None

PATIENT
  Age: 56 Year
  Sex: Female

DRUGS (1)
  1. HUMIRA [Suspect]
     Active Substance: ADALIMUMAB
     Indication: PSORIATIC ARTHROPATHY
     Route: 058
     Dates: start: 20150922

REACTIONS (5)
  - Hypertension [None]
  - Dyspnoea [None]
  - Chest pain [None]
  - Palpitations [None]
  - Pain in extremity [None]

NARRATIVE: CASE EVENT DATE: 20151106
